FAERS Safety Report 15260143 (Version 2)
Quarter: 2018Q3

REPORT INFORMATION
  Report Type: Spontaneous
  Country: AR (occurrence: AR)
  Receive Date: 20180809
  Receipt Date: 20180829
  Transmission Date: 20181010
  Serious: Yes (Hospitalization, Other)
  Sender: FDA-Public Use
  Company Number: AR-SA-2018SA211421

PATIENT
  Age: 23 Year
  Sex: Female

DRUGS (9)
  1. PARACETAMOL [Concomitant]
     Active Substance: ACETAMINOPHEN
     Dosage: 1 G
     Dates: start: 20180725
  2. METHYLPREDNISOLONE. [Suspect]
     Active Substance: METHYLPREDNISOLONE
     Indication: IMMUNOSUPPRESSION
     Dosage: UNK
     Dates: start: 20140919
  3. DIPHENHYDRAMINE. [Concomitant]
     Active Substance: DIPHENHYDRAMINE
     Dosage: 1 DF
     Dates: start: 20180725
  4. THYMOGLOBULIN [Suspect]
     Active Substance: LAPINE T-LYMPHOCYTE IMMUNE GLOBULIN
     Indication: APLASIA
     Dosage: 200 MG
     Dates: start: 20140919
  5. THYMOGLOBULIN [Suspect]
     Active Substance: LAPINE T-LYMPHOCYTE IMMUNE GLOBULIN
     Dosage: UNK
     Dates: start: 20180726
  6. METHYLPREDNISOLONE. [Suspect]
     Active Substance: METHYLPREDNISOLONE
     Dosage: UNK
     Dates: start: 20180726
  7. CYCLOSPORINE. [Suspect]
     Active Substance: CYCLOSPORINE
     Indication: IMMUNOSUPPRESSION
     Dosage: 250 MG, QD
     Dates: start: 20140919, end: 201805
  8. HYDROCORTISONE. [Concomitant]
     Active Substance: HYDROCORTISONE
     Dosage: 100 MG
     Dates: start: 20180725
  9. CYCLOSPORINE. [Suspect]
     Active Substance: CYCLOSPORINE
     Dosage: UNK
     Dates: start: 20180726

REACTIONS (12)
  - Rash [Recovered/Resolved]
  - Pyrexia [Recovered/Resolved]
  - Rash papular [Unknown]
  - Conjunctival haemorrhage [Unknown]
  - Rash generalised [Unknown]
  - Dyspnoea [Unknown]
  - Malaise [Unknown]
  - Pruritus [Unknown]
  - Blister [Unknown]
  - Body temperature increased [Unknown]
  - Skin lesion [Recovered/Resolved]
  - Mucosal haemorrhage [Unknown]

NARRATIVE: CASE EVENT DATE: 20140919
